FAERS Safety Report 9684140 (Version 1)
Quarter: 2013Q4

REPORT INFORMATION
  Report Type: Report from Study
  Country: US (occurrence: US)
  Receive Date: 20131112
  Receipt Date: 20131112
  Transmission Date: 20140711
  Serious: Yes (Other)
  Sender: FDA-Public Use
  Company Number: US-ROCHE-1296873

PATIENT
  Age: 41 Year
  Sex: Female

DRUGS (7)
  1. XOLAIR [Suspect]
     Indication: ASTHMA
     Route: 058
  2. XOLAIR [Suspect]
     Route: 058
     Dates: start: 20130926
  3. PROVENTIL [Concomitant]
  4. DULERA [Concomitant]
  5. DUONEB [Concomitant]
  6. MONTELUKAST [Concomitant]
  7. ALBUTEROL [Concomitant]

REACTIONS (4)
  - Bronchospasm [Recovered/Resolved]
  - Dyspnoea [Recovered/Resolved]
  - Pruritus [Recovered/Resolved]
  - Cough [Recovered/Resolved]
